FAERS Safety Report 5823001-5 (Version None)
Quarter: 2008Q3

REPORT INFORMATION
  Report Type: 
  Country: None (occurrence: None)
  Receive Date: 20080725
  Receipt Date: 20080717
  Transmission Date: 20090109
  Serious: Yes (Hospitalization)
  Sender: FDA-Public Use
  Company Number: B0529633A

PATIENT
  Age: 45 Year
  Sex: Female

DRUGS (6)
  1. ARIXTRA [Suspect]
     Indication: PULMONARY EMBOLISM
     Route: 058
     Dates: start: 20080614, end: 20080618
  2. LOVENOX [Suspect]
     Indication: PULMONARY EMBOLISM
     Dosage: .6ML TWICE PER DAY
     Route: 058
     Dates: start: 20080618, end: 20080621
  3. LEUPROLIDE ACETATE [Concomitant]
     Route: 065
  4. COUMADIN [Concomitant]
     Route: 065
  5. ZOLOFT [Concomitant]
     Route: 065
  6. TARDYFERON [Concomitant]
     Route: 065

REACTIONS (10)
  - ABDOMINAL PAIN [None]
  - HAEMORRHAGIC ANAEMIA [None]
  - HYPOVOLAEMIA [None]
  - MULTIPLE DRUG OVERDOSE ACCIDENTAL [None]
  - PERITONEAL HAEMORRHAGE [None]
  - POST PROCEDURAL HAEMORRHAGE [None]
  - PROCEDURAL PAIN [None]
  - RENAL FAILURE [None]
  - SECRETION DISCHARGE [None]
  - THROMBOSIS [None]
